FAERS Safety Report 6848704-5 (Version None)
Quarter: 2010Q3

REPORT INFORMATION
  Report Type: 
  Country: None (occurrence: None)
  Receive Date: 20100716
  Receipt Date: 20070907
  Transmission Date: 20110219
  Serious: No
  Sender: FDA-Public Use
  Company Number: US-PFIZER INC-2007074784

PATIENT
  Sex: Female
  Weight: 73.6 kg

DRUGS (3)
  1. CHANTIX [Suspect]
     Indication: SMOKING CESSATION THERAPY
     Dates: start: 20070831
  2. TOPROL-XL [Suspect]
     Indication: HYPERTENSION
     Dates: start: 20060101
  3. FASLODEX [Concomitant]
     Indication: BREAST CANCER

REACTIONS (3)
  - DECREASED APPETITE [None]
  - FEELING ABNORMAL [None]
  - NAUSEA [None]
